FAERS Safety Report 24433372 (Version 2)
Quarter: 2024Q4

REPORT INFORMATION
  Report Type: Spontaneous
  Country: AU (occurrence: AU)
  Receive Date: 20241014
  Receipt Date: 20241122
  Transmission Date: 20250115
  Serious: Yes (Hospitalization)
  Sender: GLENMARK
  Company Number: AU-GLENMARK PHARMACEUTICALS-2024GMK094755

PATIENT

DRUGS (1)
  1. RYALTRIS [Suspect]
     Active Substance: MOMETASONE FUROATE MONOHYDRATE\OLOPATADINE HYDROCHLORIDE
     Indication: Product used for unknown indication
     Dosage: UNK
     Route: 045
     Dates: start: 202402

REACTIONS (4)
  - Giant cell arteritis [Unknown]
  - Product administration interrupted [Unknown]
  - Wrong technique in device usage process [Unknown]
  - Device delivery system issue [Unknown]
